FAERS Safety Report 24686287 (Version 1)
Quarter: 2024Q4

REPORT INFORMATION
  Report Type: Spontaneous
  Country: US (occurrence: None)
  Receive Date: 20241128
  Receipt Date: 20241128
  Transmission Date: 20250114
  Serious: Yes (Hospitalization, Disabling, Other)
  Sender: Public
  Company Number: None

PATIENT
  Age: 39 Year
  Weight: 75.6 kg

DRUGS (2)
  1. GEODON [Suspect]
     Active Substance: ZIPRASIDONE HYDROCHLORIDE\ZIPRASIDONE MESYLATE
     Dates: start: 20230823, end: 20231110
  2. TOPAMAX [Suspect]
     Active Substance: TOPIRAMATE

REACTIONS (4)
  - Tardive dyskinesia [None]
  - Cerebrovascular accident [None]
  - Generalised tonic-clonic seizure [None]
  - Conversion disorder [None]

NARRATIVE: CASE EVENT DATE: 20230823
